FAERS Safety Report 19750894 (Version 2)
Quarter: 2021Q3

REPORT INFORMATION
  Report Type: Other
  Country: US (occurrence: US)
  Receive Date: 20210826
  Receipt Date: 20210907
  Transmission Date: 20211014
  Serious: No
  Sender: FDA-Public Use
  Company Number: US-ROCHE-2893938

PATIENT
  Sex: Female

DRUGS (1)
  1. OCREVUS [Suspect]
     Active Substance: OCRELIZUMAB
     Indication: RELAPSING MULTIPLE SCLEROSIS
     Dosage: (PRESCRIBED AS300 MG ON DAY 1 ANSD DAY 15 AND 600 MG ONCE IN 6 MONTHS)
     Route: 042

REACTIONS (2)
  - Sinusitis [Recovering/Resolving]
  - COVID-19 [Recovered/Resolved]
